FAERS Safety Report 5594938-X (Version None)
Quarter: 2008Q1

REPORT INFORMATION
  Report Type: 
  Country: None (occurrence: None)
  Receive Date: 20080117
  Receipt Date: 20080114
  Transmission Date: 20080703
  Serious: Yes (Hospitalization, Other)
  Sender: FDA-Public Use
  Company Number: US-MERCK-0607USA00822

PATIENT
  Age: 68 Year
  Sex: Male
  Weight: 81 kg

DRUGS (7)
  1. FOSAMAX [Suspect]
     Indication: OSTEOPOROSIS
     Route: 048
     Dates: start: 19960101, end: 20060401
  2. FOSAMAX [Suspect]
     Route: 048
     Dates: start: 19980820, end: 20031014
  3. FOSAMAX [Suspect]
     Route: 048
     Dates: start: 20020114, end: 20050610
  4. PROSCAR [Concomitant]
     Indication: BENIGN PROSTATIC HYPERPLASIA
     Route: 048
  5. HYTRIN [Concomitant]
     Indication: BENIGN PROSTATIC HYPERPLASIA
     Route: 065
  6. COZAAR [Concomitant]
     Route: 048
  7. CARDURA [Suspect]
     Route: 065

REACTIONS (24)
  - BLOOD PARATHYROID HORMONE INCREASED [None]
  - CHOLELITHIASIS [None]
  - CLOSTRIDIUM DIFFICILE COLITIS [None]
  - COLONIC POLYP [None]
  - CONTUSION [None]
  - DEHYDRATION [None]
  - DEPRESSION [None]
  - DIARRHOEA [None]
  - DIZZINESS [None]
  - EAR PRURITUS [None]
  - FALL [None]
  - GASTRITIS [None]
  - HYPOAESTHESIA [None]
  - IRRITABLE BOWEL SYNDROME [None]
  - MYOCARDIAL INFARCTION [None]
  - NAUSEA [None]
  - NEUROPATHY PERIPHERAL [None]
  - NOCTURIA [None]
  - OSTEONECROSIS [None]
  - PANCREATITIS ACUTE [None]
  - PARAESTHESIA [None]
  - SINUSITIS [None]
  - SPINAL COMPRESSION FRACTURE [None]
  - WEIGHT DECREASED [None]
